FAERS Safety Report 19692711 (Version 1)
Quarter: 2021Q3

REPORT INFORMATION
  Report Type: Report from Study
  Country: US (occurrence: US)
  Receive Date: 20210812
  Receipt Date: 20210812
  Transmission Date: 20211014
  Serious: Yes (Hospitalization)
  Sender: FDA-Public Use
  Company Number: US-GILEAD-2021-0529264

PATIENT
  Age: 70 Year
  Sex: Female
  Weight: 46 kg

DRUGS (24)
  1. DICYCLOMINE [Concomitant]
     Active Substance: DICYCLOMINE HYDROCHLORIDE
     Indication: ABDOMINAL PAIN
     Dosage: 20 MG, BID, PRN
     Route: 048
     Dates: start: 20200518
  2. PHENAZOPYRIDIN HCL [Concomitant]
     Indication: BLADDER SPASM
     Dosage: 100 MG, TID, X 3 DAYS
     Route: 048
     Dates: start: 20200708, end: 20201014
  3. ALPRAZOLAM. [Concomitant]
     Active Substance: ALPRAZOLAM
     Indication: ANXIETY
     Dosage: 1 MG, TID, PRN
     Route: 048
     Dates: start: 20181031
  4. ALPRAZOLAM. [Concomitant]
     Active Substance: ALPRAZOLAM
     Indication: NAUSEA
  5. NEURONTIN [Concomitant]
     Active Substance: GABAPENTIN
     Indication: NEUROPATHY PERIPHERAL
     Dosage: 600 MG (2X 300 MG CAPSULE), BID (Q12H)
     Route: 048
     Dates: start: 20200506, end: 20201014
  6. PROBIOTICS NOS [Concomitant]
     Active Substance: PROBIOTICS NOS
     Indication: GASTROINTESTINAL DISORDER
     Dosage: 1 DF (TABLET), QD
     Route: 048
     Dates: start: 20200101
  7. CHRONULAC [Concomitant]
     Active Substance: LACTULOSE
     Indication: CONSTIPATION
     Dosage: 30 ML (20G), TID, PRN
     Route: 048
     Dates: start: 20200610, end: 20201016
  8. LORATADINE. [Concomitant]
     Active Substance: LORATADINE
     Indication: RHINITIS ALLERGIC
     Dosage: 10 MG, QD
     Route: 048
     Dates: start: 20180709
  9. PRILOSEC [Concomitant]
     Active Substance: OMEPRAZOLE MAGNESIUM
     Indication: NAUSEA
     Dosage: 20 MG, QD (MORNING), PRN (USUALLY TAKES ABOUT QOD)
     Route: 048
     Dates: end: 20200929
  10. PROMETHAZINE [Concomitant]
     Active Substance: PROMETHAZINE HYDROCHLORIDE
     Indication: NAUSEA
     Dosage: 25 MG, QID (Q6H), PRN
     Route: 048
     Dates: start: 20200501
  11. VENLAFAXINE [Concomitant]
     Active Substance: VENLAFAXINE HYDROCHLORIDE
     Dosage: 75 MG, BID
     Route: 048
     Dates: start: 20190224, end: 20201014
  12. BREO ELLIPTA [Concomitant]
     Active Substance: FLUTICASONE FUROATE\VILANTEROL TRIFENATATE
     Dosage: 1 DF (PUFF; 100?25 MCG/DOSE)
     Route: 055
     Dates: start: 20200922, end: 20200929
  13. OXYCODONE [Concomitant]
     Active Substance: OXYCODONE
     Indication: PAIN
     Dosage: 10 MG, Q4H, PRN
     Route: 048
     Dates: start: 20200701, end: 20201014
  14. SCOPOLAMINE [HYOSCINE] [Concomitant]
     Active Substance: SCOPOLAMINE
     Indication: NAUSEA
     Dosage: 1 DF (PATCH), EVERY 3 DAYS
     Route: 062
     Dates: start: 20200508
  15. SACITUZUMAB GOVITECAN. [Suspect]
     Active Substance: SACITUZUMAB GOVITECAN
     Indication: BREAST CANCER METASTATIC
     Dosage: 10 MG/KG (476 MG ONCE) DAYS 1 AND 8 OF 21?DAYS CYCLE
     Route: 042
     Dates: start: 20200813, end: 20200813
  16. SACITUZUMAB GOVITECAN. [Suspect]
     Active Substance: SACITUZUMAB GOVITECAN
     Dosage: 10 MG/KG DAYS 1 AND 8 OF 21?DAYS CYCLE
     Route: 042
     Dates: start: 20201007, end: 20201007
  17. TRAZODONE HYDROCHLORIDE. [Concomitant]
     Active Substance: TRAZODONE HYDROCHLORIDE
     Dosage: 150 MG (2 TABLETS), QD (NIGHTLY)
     Route: 048
     Dates: start: 20161205
  18. SODIUM CHLORIDE. [Concomitant]
     Active Substance: SODIUM CHLORIDE
     Indication: DEHYDRATION
     Dosage: 0.9 %
     Route: 065
     Dates: start: 20200625, end: 20201016
  19. BREO ELLIPTA [Concomitant]
     Active Substance: FLUTICASONE FUROATE\VILANTEROL TRIFENATATE
     Dosage: 1 DF (PUFF; 100?25 MCG/DOSE)
     Route: 055
     Dates: start: 20200921, end: 20200922
  20. SACITUZUMAB GOVITECAN. [Suspect]
     Active Substance: SACITUZUMAB GOVITECAN
     Dosage: 10 MG/KG (462 MG ONCE) DAYS 1 AND 8 OF 21?DAYS CYCLE
     Route: 042
     Dates: start: 20200909, end: 20200909
  21. TRAZODONE HYDROCHLORIDE. [Concomitant]
     Active Substance: TRAZODONE HYDROCHLORIDE
     Indication: INSOMNIA
     Dosage: 150 MG, QD (NIGHTLY)
     Route: 048
     Dates: start: 20200101, end: 20200929
  22. BREO ELLIPTA [Concomitant]
     Active Substance: FLUTICASONE FUROATE\VILANTEROL TRIFENATATE
     Indication: DYSPNOEA
     Dosage: 1 DF (PUFF), QD, PRN
     Route: 055
     Dates: end: 20201014
  23. MULTIVITAMINS [VITAMINS NOS] [Concomitant]
     Active Substance: VITAMINS
     Indication: ROUTINE HEALTH MAINTENANCE
     Dosage: 1 DF (CAPSULE), QD
     Route: 048
     Dates: start: 19960101
  24. B?COMPLEX [VITAMIN B NOS] [Concomitant]
     Active Substance: VITAMINS
     Indication: ROUTINE HEALTH MAINTENANCE
     Dosage: 1 DF (CAPSULE), QD
     Route: 048
     Dates: start: 20170101

REACTIONS (3)
  - Vomiting [Recovered/Resolved]
  - Diarrhoea [Recovered/Resolved]
  - Device related infection [Recovered/Resolved]

NARRATIVE: CASE EVENT DATE: 20200920
